FAERS Safety Report 9385446 (Version 6)
Quarter: 2014Q2

REPORT INFORMATION
  Report Type: Spontaneous
  Country: US (occurrence: US)
  Receive Date: 20130705
  Receipt Date: 20140623
  Transmission Date: 20141212
  Serious: Yes (Hospitalization, Disabling, Other)
  Sender: FDA-Public Use
  Company Number: US-009507513-1307USA001925

PATIENT
  Sex: Male
  Weight: 97.51 kg

DRUGS (8)
  1. FOSAMAX [Suspect]
     Indication: OSTEOPOROSIS
     Dosage: 10 MG, UNK
     Route: 048
     Dates: start: 19970225
  2. FOSAMAX [Suspect]
     Dosage: 70 MG, QW
     Route: 048
     Dates: end: 20070928
  3. ALENDRONATE SODIUM [Suspect]
     Dosage: 70 MG, QW
     Dates: start: 20071009, end: 20110921
  4. METHOTREXATE [Concomitant]
     Indication: JUVENILE IDIOPATHIC ARTHRITIS
     Dosage: 2.5 MG, 6-8 TAB, QW
     Route: 048
     Dates: start: 1989
  5. PREDNISONE [Concomitant]
     Indication: JUVENILE IDIOPATHIC ARTHRITIS
     Dosage: 2.5-10 MG, DAILY
     Route: 048
     Dates: start: 1989
  6. INDOCIN (INDOMETHACIN) [Concomitant]
     Indication: JUVENILE IDIOPATHIC ARTHRITIS
     Dosage: 75 MG, BID
     Route: 048
     Dates: start: 1986
  7. FOLIC ACID [Concomitant]
     Dosage: 1 MG, QD
     Dates: start: 1989
  8. CORTICOSTEROIDS (UNSPECIFIED) [Concomitant]
     Dosage: UNK
     Dates: start: 1990, end: 1999

REACTIONS (61)
  - Femur fracture [Recovering/Resolving]
  - Open reduction of fracture [Unknown]
  - Surgery [Unknown]
  - Femur fracture [Unknown]
  - Femur fracture [Unknown]
  - Hip arthroplasty [Unknown]
  - Open reduction of fracture [Unknown]
  - Surgery [Unknown]
  - Femur fracture [Unknown]
  - Femur fracture [Unknown]
  - Limb operation [Unknown]
  - Osteonecrosis [Unknown]
  - Hip arthroplasty [Unknown]
  - Foot operation [Unknown]
  - Foot operation [Unknown]
  - Hip arthroplasty [Unknown]
  - Hip arthroplasty [Unknown]
  - Renal failure acute [Unknown]
  - Flank pain [Unknown]
  - Fracture nonunion [Unknown]
  - Spinal fusion surgery [Unknown]
  - Renal failure chronic [Not Recovered/Not Resolved]
  - Calculus ureteric [Unknown]
  - Diverticular perforation [Unknown]
  - Osteonecrosis [Unknown]
  - Hip arthroplasty [Unknown]
  - Device breakage [Unknown]
  - Fracture nonunion [Unknown]
  - Gastric disorder [Unknown]
  - Deformity [Unknown]
  - Foot deformity [Unknown]
  - Skin ulcer [Unknown]
  - Foot operation [Unknown]
  - Foot operation [Unknown]
  - Device issue [Unknown]
  - Fall [Unknown]
  - Flank pain [Unknown]
  - Road traffic accident [Unknown]
  - Essential hypertension [Unknown]
  - Pleurisy [Unknown]
  - Bone deformity [Unknown]
  - Dyspnoea exertional [Unknown]
  - Night sweats [Unknown]
  - Anaemia [Unknown]
  - Glaucoma [Unknown]
  - Tachycardia [Recovered/Resolved]
  - Osteoarthritis [Unknown]
  - Atrial fibrillation [Unknown]
  - Chronic obstructive pulmonary disease [Not Recovered/Not Resolved]
  - Foot fracture [Unknown]
  - Nephrolithiasis [Unknown]
  - Ulna fracture [Unknown]
  - Anxiety [Unknown]
  - Intervertebral disc degeneration [Unknown]
  - Device dislocation [Unknown]
  - Upper gastrointestinal haemorrhage [Unknown]
  - Tendon operation [Unknown]
  - Diarrhoea [Not Recovered/Not Resolved]
  - Back pain [Not Recovered/Not Resolved]
  - Rash [Unknown]
  - Gastrooesophageal reflux disease [Unknown]
